FAERS Safety Report 5357142-6 (Version None)
Quarter: 2007Q2

REPORT INFORMATION
  Report Type: 
  Country: None (occurrence: None)
  Receive Date: 20070612
  Receipt Date: 20070531
  Transmission Date: 20071010
  Serious: Yes (Hospitalization)
  Sender: FDA-Public Use
  Company Number: CIP07001047

PATIENT
  Age: 81 Year
  Sex: Female

DRUGS (4)
  1. RISEDRONATE SODIUM [Suspect]
     Indication: OSTEOPOROSIS
     Dosage: UNK, UNK, ORAL
     Route: 048
  2. BLOPRESS(CANDESARTAN CILEXETIL) [Suspect]
     Indication: HYPERTENSION
     Dosage: UNK, UNK, ORAL
     Route: 048
     Dates: end: 20070501
  3. LIPITOR [Suspect]
     Indication: HYPERLIPIDAEMIA
     Dosage: UNK, UNK, ORAL
     Route: 048
  4. STOGAR(LAFUTIDINE) [Suspect]

REACTIONS (1)
  - LIVER DISORDER [None]
